FAERS Safety Report 5721753-6 (Version None)
Quarter: 2008Q2

REPORT INFORMATION
  Report Type: 
  Country: None (occurrence: None)
  Receive Date: 20080429
  Receipt Date: 20070423
  Transmission Date: 20081010
  Serious: Yes (Other)
  Sender: FDA-Public Use
  Company Number: US-ASTRAZENECA-2007UW07883

PATIENT
  Age: 85 Year
  Sex: Female
  Weight: 56.7 kg

DRUGS (3)
  1. NEXIUM [Suspect]
     Indication: PHARYNGEAL OEDEMA
     Route: 048
     Dates: start: 20050101
  2. LIPITOR [Concomitant]
     Route: 048
  3. CELEBREX [Concomitant]
     Route: 048

REACTIONS (1)
  - DYSPNOEA [None]
